FAERS Safety Report 8520758 (Version 3)
Quarter: 2013Q3

REPORT INFORMATION
  Report Type: Spontaneous
  Country: US (occurrence: US)
  Receive Date: 20120418
  Receipt Date: 20130705
  Transmission Date: 20140515
  Serious: No
  Sender: FDA-Public Use
  Company Number: US-ASTRAZENECA-2011SE64153

PATIENT
  Age: 76 Year
  Sex: Female
  Weight: 63.5 kg

DRUGS (11)
  1. NEXIUM [Suspect]
     Indication: GASTROOESOPHAGEAL REFLUX DISEASE
     Route: 048
  2. NEXIUM [Suspect]
     Indication: GASTROOESOPHAGEAL REFLUX DISEASE
     Route: 048
  3. NEXIUM [Suspect]
     Indication: GASTROOESOPHAGEAL REFLUX DISEASE
     Route: 048
     Dates: start: 2011
  4. NEXIUM [Suspect]
     Indication: GASTROOESOPHAGEAL REFLUX DISEASE
     Route: 048
     Dates: start: 2011, end: 20130430
  5. PRILOSEC OTC [Suspect]
     Indication: GASTROOESOPHAGEAL REFLUX DISEASE
     Route: 048
     Dates: start: 20130501
  6. OXYBUTYNIN [Concomitant]
     Indication: BLADDER DISORDER
  7. TRAZODONE [Concomitant]
     Indication: SLEEP DISORDER
  8. ACETAMINOPHEN PM [Concomitant]
     Indication: SLEEP DISORDER
  9. ACETAMINOPHEN [Concomitant]
     Indication: ANALGESIC THERAPY
  10. IBUPROFEN [Concomitant]
     Indication: ANALGESIC THERAPY
  11. RHINOCORT [Concomitant]

REACTIONS (10)
  - Chronic sinusitis [Not Recovered/Not Resolved]
  - Asthma [Unknown]
  - Gastrooesophageal reflux disease [Unknown]
  - Nasopharyngitis [Not Recovered/Not Resolved]
  - Cough [Not Recovered/Not Resolved]
  - Dysphonia [Unknown]
  - Influenza [Unknown]
  - Drug dose omission [Unknown]
  - Drug effect incomplete [Unknown]
  - Off label use [Unknown]
